FAERS Safety Report 4421803-3 (Version None)
Quarter: 2004Q3

REPORT INFORMATION
  Report Type: 
  Country: None (occurrence: None)
  Receive Date: 20040806
  Receipt Date: 20040716
  Transmission Date: 20050211
  Serious: Yes (Other)
  Sender: FDA-Public Use
  Company Number: USA040671346

PATIENT
  Age: 81 Year
  Sex: Male

DRUGS (9)
  1. FORTEO [Suspect]
     Indication: OSTEOPOROSIS
     Dosage: 20 UG DAY
     Dates: start: 20040624
  2. MAGNESIUM (MAGNESIUM ASPARTATE) [Concomitant]
  3. ISOSORBIDE [Concomitant]
  4. ATROPINE [Concomitant]
  5. DILTIAZEM [Concomitant]
  6. ASPIRIN [Concomitant]
  7. VITAMIN B COMPLEX CAP [Concomitant]
  8. VITAMIN E [Concomitant]
  9. ZOCOR [Concomitant]

REACTIONS (14)
  - ASTHENIA [None]
  - CHEST PAIN [None]
  - COMA [None]
  - CONFUSIONAL STATE [None]
  - CONVULSION [None]
  - DIZZINESS [None]
  - DYSPNOEA [None]
  - ELECTROCARDIOGRAM ST SEGMENT DEPRESSION [None]
  - FATIGUE [None]
  - MYOCARDIAL INFARCTION [None]
  - NAUSEA [None]
  - OXYGEN SATURATION DECREASED [None]
  - TREMOR [None]
  - URINARY INCONTINENCE [None]
